FAERS Safety Report 6358989-X (Version None)
Quarter: 2009Q3

REPORT INFORMATION
  Report Type: 
  Country: None (occurrence: None)
  Receive Date: 20090914
  Receipt Date: 20090826
  Transmission Date: 20100115
  Serious: Yes (Other)
  Sender: FDA-Public Use
  Company Number: DIAT-68

PATIENT
  Age: 1 Year
  Sex: Female

DRUGS (8)
  1. DAUNOXOME [Suspect]
  2. ALEMTUZUMAB [Suspect]
     Indication: PROPHYLAXIS AGAINST GRAFT VERSUS HOST DISEASE
  3. BUSULFAN [Suspect]
     Indication: BONE MARROW CONDITIONING REGIMEN
  4. CYCLOSPORINE [Suspect]
     Indication: PROPHYLAXIS AGAINST GRAFT VERSUS HOST DISEASE
  5. CLOFARABINE [Suspect]
  6. CYCLOPHOSPHAMIDE [Suspect]
     Indication: BONE MARROW CONDITIONING REGIMEN
  7. MELPHALAN [Suspect]
     Indication: BONE MARROW CONDITIONING REGIMEN
     Dosage: 140 MG/SQM DAILY
  8. METHOTREXATE [Suspect]
     Indication: PROPHYLAXIS AGAINST GRAFT VERSUS HOST DISEASE

REACTIONS (5)
  - ACUTE MYELOID LEUKAEMIA RECURRENT [None]
  - ADENOVIRUS INFECTION [None]
  - PULMONARY HYPERTENSION [None]
  - RENAL IMPAIRMENT [None]
  - STEM CELL TRANSPLANT [None]
